FAERS Safety Report 16271339 (Version 1)
Quarter: 2019Q2

REPORT INFORMATION
  Report Type: Spontaneous
  Country: US (occurrence: US)
  Receive Date: 20190503
  Receipt Date: 20190503
  Transmission Date: 20190711
  Serious: No
  Sender: FDA-Public Use
  Company Number: US-PERRIGO-18US003584

PATIENT
  Age: 65 Year
  Sex: Male
  Weight: 79.37 kg

DRUGS (4)
  1. CETIRIZINE [Concomitant]
     Active Substance: CETIRIZINE HYDROCHLORIDE
     Indication: SEASONAL ALLERGY
     Dosage: UNK
     Route: 065
  2. FAMOTIDINE. [Suspect]
     Active Substance: FAMOTIDINE
     Dosage: 10 MG, SINGLE
     Route: 048
     Dates: start: 20180331, end: 20180331
  3. FAMOTIDINE. [Suspect]
     Active Substance: FAMOTIDINE
     Indication: DYSPEPSIA
     Dosage: 10 MG, QD, PRN
     Route: 048
     Dates: start: 20180215, end: 20180327
  4. AMLODIPINE [Concomitant]
     Active Substance: AMLODIPINE BESYLATE
     Indication: HYPERTENSION
     Dosage: UNK
     Route: 065

REACTIONS (3)
  - Nasal congestion [Recovered/Resolved]
  - Incorrect product administration duration [Recovered/Resolved]
  - Rhinorrhoea [Recovered/Resolved]

NARRATIVE: CASE EVENT DATE: 20180215
